FAERS Safety Report 9066324 (Version 1)
Quarter: 2013Q1

REPORT INFORMATION
  Report Type: Report from Study
  Country: US (occurrence: US)
  Receive Date: 20130131
  Receipt Date: 20130131
  Transmission Date: 20140127
  Serious: No
  Sender: FDA-Public Use
  Company Number: US-ABBOTT-12P-163-1016806-00

PATIENT
  Age: 52 Year
  Sex: Male

DRUGS (8)
  1. HUMIRA [Suspect]
     Indication: CROHN^S DISEASE
     Dosage: LOADING
     Route: 058
     Dates: start: 20121116, end: 20121116
  2. HUMIRA [Suspect]
     Route: 058
     Dates: start: 20121128, end: 20121128
  3. ASACOL [Concomitant]
     Indication: PRODUCT USED FOR UNKNOWN INDICATION
     Dosage: 4 A DAY
  4. PREDNISONE [Concomitant]
     Indication: PRODUCT USED FOR UNKNOWN INDICATION
     Dosage: 3 A DAY
  5. FERROUS [Concomitant]
     Indication: PRODUCT USED FOR UNKNOWN INDICATION
  6. METRO (ANTIBIOTIC) [Concomitant]
     Indication: PRODUCT USED FOR UNKNOWN INDICATION
  7. HYDROCHLOROTHIAZIDE [Concomitant]
     Indication: MUSCLE SPASMS
  8. HYDROCODONE [Concomitant]
     Indication: PAIN
     Dosage: 17.5/325MG EVERY 4 HOURS AS NEEDED

REACTIONS (1)
  - Acne [Not Recovered/Not Resolved]
